FAERS Safety Report 12213742 (Version 1)
Quarter: 2016Q1

REPORT INFORMATION
  Report Type: Spontaneous
  Country: GB (occurrence: GB)
  Receive Date: 20160328
  Receipt Date: 20160328
  Transmission Date: 20160526
  Serious: Yes (Other)
  Sender: FDA-Public Use
  Company Number: GB-SA-2016SA058657

PATIENT
  Age: 68 Year
  Sex: Male

DRUGS (5)
  1. INDAPAMIDE. [Suspect]
     Active Substance: INDAPAMIDE
     Indication: HYPERTENSION
     Route: 065
     Dates: start: 20160129, end: 20160225
  2. VENTOLIN [Concomitant]
     Active Substance: ALBUTEROL SULFATE
     Indication: CHEST PAIN
  3. SYMBICORT [Concomitant]
     Active Substance: BUDESONIDE\FORMOTEROL FUMARATE DIHYDRATE
  4. ATORVASTATIN [Concomitant]
     Active Substance: ATORVASTATIN
  5. PRIMIDONE. [Concomitant]
     Active Substance: PRIMIDONE

REACTIONS (9)
  - Polyuria [Unknown]
  - Pollakiuria [Unknown]
  - Hypotension [Unknown]
  - Abdominal pain [Unknown]
  - Abnormal loss of weight [Unknown]
  - Constipation [Unknown]
  - Dysphonia [Unknown]
  - Dry mouth [Unknown]
  - Dizziness [Unknown]

NARRATIVE: CASE EVENT DATE: 20160131
